FAERS Safety Report 25006562 (Version 3)
Quarter: 2025Q2

REPORT INFORMATION
  Report Type: Report from Study
  Country: US (occurrence: US)
  Receive Date: 20250225
  Receipt Date: 20250428
  Transmission Date: 20250717
  Serious: Yes (Other)
  Sender: ABBVIE
  Company Number: US-ABBVIE-6143662

PATIENT
  Age: 73 Year
  Sex: Female
  Weight: 82.1 kg

DRUGS (2)
  1. CREON [Suspect]
     Active Substance: PANCRELIPASE AMYLASE\PANCRELIPASE LIPASE\PANCRELIPASE PROTEASE
     Indication: Pancreatic failure
     Route: 048
     Dates: start: 20161112
  2. CREON [Suspect]
     Active Substance: PANCRELIPASE AMYLASE\PANCRELIPASE LIPASE\PANCRELIPASE PROTEASE
     Indication: Pancreatic failure
     Route: 048

REACTIONS (5)
  - Pancreatic carcinoma recurrent [Recovered/Resolved]
  - Diabetes mellitus [Not Recovered/Not Resolved]
  - Pancreatic carcinoma [Recovered/Resolved]
  - Heart valve replacement [Recovered/Resolved]
  - Tooth disorder [Unknown]

NARRATIVE: CASE EVENT DATE: 20161112
